FAERS Safety Report 4800123-9 (Version None)
Quarter: 2005Q4

REPORT INFORMATION
  Report Type: 
  Country: None (occurrence: None)
  Receive Date: 20051017
  Receipt Date: 20050922
  Transmission Date: 20060501
  Serious: Yes (Other)
  Sender: FDA-Public Use
  Company Number: NL-GLAXOSMITHKLINE-B0395193A

PATIENT
  Age: 75 Year
  Sex: Female

DRUGS (2)
  1. VALACYCLOVIR HCL [Suspect]
     Indication: HERPES ZOSTER
     Route: 065
  2. ACENOCOUMAROL [Concomitant]
     Indication: PROPHYLAXIS
     Route: 065

REACTIONS (1)
  - ARTERIAL THROMBOSIS [None]
